FAERS Safety Report 12167933 (Version 2)
Quarter: 2016Q2

REPORT INFORMATION
  Report Type: Spontaneous
  Country: US (occurrence: US)
  Receive Date: 20160310
  Receipt Date: 20160615
  Transmission Date: 20160815
  Serious: Yes (Other)
  Sender: FDA-Public Use
  Company Number: US-PFIZER INC-2016133912

PATIENT
  Age: 59 Year
  Sex: Female

DRUGS (6)
  1. IBRANCE [Suspect]
     Active Substance: PALBOCICLIB
     Indication: BREAST CANCER
     Dosage: 100 MG, CYCLIC (TAKE 1 CAPSULE BY MOUTH DAILY PARA 21 DAYS EVERY 28 DAYS)
     Route: 048
     Dates: start: 20151020
  2. LETROZOLE. [Concomitant]
     Active Substance: LETROZOLE
  3. BENADRYL [Concomitant]
     Active Substance: DIPHENHYDRAMINE HYDROCHLORIDE
  4. PB [Concomitant]
  5. IBRANCE [Suspect]
     Active Substance: PALBOCICLIB
     Dosage: 100 MG, CYCLIC (21 DAYS ON AND 7 DAYS OFF)
     Dates: start: 201602
  6. KEPPRA [Concomitant]
     Active Substance: LEVETIRACETAM

REACTIONS (5)
  - Paraesthesia [Unknown]
  - Seizure [Recovering/Resolving]
  - Activities of daily living impaired [Unknown]
  - Hypoaesthesia [Unknown]
  - Insomnia [Unknown]
